FAERS Safety Report 5353128-6 (Version None)
Quarter: 2007Q2

REPORT INFORMATION
  Report Type: 
  Country: None (occurrence: None)
  Receive Date: 20070611
  Receipt Date: 20070530
  Transmission Date: 20071010
  Serious: Yes (Hospitalization, Other)
  Sender: FDA-Public Use
  Company Number: DE-PFIZER INC-2007046350

PATIENT
  Age: 74 Year
  Sex: Female

DRUGS (3)
  1. SUTENT [Suspect]
     Indication: METASTATIC RENAL CELL CARCINOMA
  2. HYDROCHLOROTHIAZIDE [Concomitant]
  3. ACE INHIBITOR NOS [Concomitant]

REACTIONS (9)
  - BLOOD CREATINE PHOSPHOKINASE INCREASED [None]
  - BLOOD CREATININE INCREASED [None]
  - BLOOD SODIUM DECREASED [None]
  - CHOLESTASIS [None]
  - DEPRESSED LEVEL OF CONSCIOUSNESS [None]
  - FEBRILE NEUTROPENIA [None]
  - HYPERTENSION [None]
  - STAPHYLOCOCCAL INFECTION [None]
  - THROMBOCYTOPENIA [None]
